FAERS Safety Report 7602522-9 (Version None)
Quarter: 2011Q3

REPORT INFORMATION
  Report Type: 
  Country: None (occurrence: None)
  Receive Date: 20110707
  Receipt Date: 20110427
  Transmission Date: 20111222
  Serious: Yes (Hospitalization)
  Sender: FDA-Public Use
  Company Number: US-CYPR-2011-000015

PATIENT
  Sex: Male
  Weight: 85 kg

DRUGS (11)
  1. PROVERA [Concomitant]
  2. ASPIRIN [Suspect]
     Indication: CORONARY ARTERY DISEASE
     Dosage: (325 MG QD ORAL) ; (325 MG QD ORAL)
     Route: 048
     Dates: start: 20110502
  3. ASPIRIN [Suspect]
     Indication: CORONARY ARTERY DISEASE
     Dosage: (325 MG QD ORAL) ; (325 MG QD ORAL)
     Route: 048
     Dates: start: 20040101, end: 20110416
  4. CARDURA [Concomitant]
  5. CLOPIDOGREL OR PLACEBO 75 MG (BRISTOL-MYERS SQUIBB/SANOFI-AVENTIS) [Suspect]
     Indication: ANTIPLATELET THERAPY
     Dosage: (75 MG QD ORAL) ; (75 MG QD ORAL)
     Route: 048
     Dates: start: 20110502
  6. CLOPIDOGREL OR PLACEBO 75 MG (BRISTOL-MYERS SQUIBB/SANOFI-AVENTIS) [Suspect]
     Indication: ANTIPLATELET THERAPY
     Dosage: (75 MG QD ORAL) ; (75 MG QD ORAL)
     Route: 048
     Dates: start: 20101013, end: 20110416
  7. ATORVASTATIN [Concomitant]
  8. METOPROLOL [Concomitant]
  9. EXFORGE [Concomitant]
  10. CYPHER STENT [Concomitant]
  11. ZOLOFT [Concomitant]

REACTIONS (2)
  - SMALL INTESTINAL OBSTRUCTION [None]
  - HAEMATEMESIS [None]
